FAERS Safety Report 6128442-7 (Version None)
Quarter: 2009Q1

REPORT INFORMATION
  Report Type: 
  Country: None (occurrence: None)
  Receive Date: 20090323
  Receipt Date: 20081231
  Transmission Date: 20090719
  Serious: Yes (Hospitalization)
  Sender: FDA-Public Use
  Company Number: US-BRISTOL-MYERS SQUIBB COMPANY-14554273

PATIENT
  Age: 61 Year
  Sex: Female
  Weight: 46 kg

DRUGS (4)
  1. CETUXIMAB [Suspect]
     Indication: NON-SMALL CELL LUNG CANCER
     Dosage: CHIMERIC ANTI-EFGR MAB; TOTAL INF: 8 INFUSIONS
     Route: 042
     Dates: start: 20080930, end: 20081223
  2. PACLITAXEL [Suspect]
     Indication: NON-SMALL CELL LUNG CANCER
     Dosage: TOTAL INF: 3 INFUSIONS
     Route: 042
     Dates: start: 20080930, end: 20081111
  3. CARBOPLATIN [Suspect]
     Indication: NON-SMALL CELL LUNG CANCER
     Dosage: TOTAL INF: 2 INFUSIONS
     Route: 042
     Dates: start: 20080930, end: 20081111
  4. BEVACIZUMAB [Suspect]
     Indication: NON-SMALL CELL LUNG CANCER
     Dosage: TOTAL INF: 2 INFUSIONS
     Route: 042
     Dates: start: 20081007, end: 20081104

REACTIONS (3)
  - ANAEMIA [None]
  - INCISION SITE PAIN [None]
  - THROMBOCYTOPENIA [None]
